FAERS Safety Report 4360734-4 (Version None)
Quarter: 2004Q2

REPORT INFORMATION
  Report Type: 
  Country: None (occurrence: None)
  Receive Date: 20040514
  Receipt Date: 20040505
  Transmission Date: 20050107
  Serious: Yes (Life-Threatening)
  Sender: FDA-Public Use
  Company Number: HQWYE713205MAY04

PATIENT
  Age: 76 Year
  Sex: Male

DRUGS (13)
  1. CORDARONE [Suspect]
     Indication: ATRIAL FIBRILLATION
     Dosage: 200 MG, 5 DAYS PER WEEK; ORAL
     Route: 048
  2. CORDARONE [Suspect]
     Indication: ATRIAL FLUTTER
     Dosage: 200 MG, 5 DAYS PER WEEK; ORAL
     Route: 048
  3. NIFEDIPINE [Suspect]
     Indication: ANGINA PECTORIS
     Dosage: 1 IU 1X PER 1 DAY; ORAL
     Route: 048
  4. ISOSORBIDE MONONITRATE [Suspect]
     Indication: ANGINA PECTORIS
     Dosage: 40 MG 1X PER 1 DAY; ORAL
     Route: 048
  5. SINTROM [Suspect]
     Indication: ATRIAL FIBRILLATION
     Dosage: 1 MG 1X PER 1 DAY; ORAL
     Route: 048
  6. SINTROM [Suspect]
     Indication: ATRIAL FLUTTER
     Dosage: 1 MG 1X PER 1 DAY; ORAL
     Route: 048
  7. TESTOSTERONE [Suspect]
     Dosage: INTRAVENOUS
     Route: 042
  8. YOHIMBINE (HOHIMBINE,) [Suspect]
     Dosage: 5 MG 1X PER 1 DAY; ORAL
     Route: 048
     Dates: start: 20040308, end: 20040308
  9. STILNOX (ZOLPIDEM) [Concomitant]
  10. NORMACOL (FRANGULA EXTRACT.STERCULIA) [Concomitant]
  11. ZOCOR [Concomitant]
  12. VASTAREL (TRIMETAZIDINE HYDROCHLORIDE) [Concomitant]
  13. TOCOPHEROX [Concomitant]

REACTIONS (4)
  - HYPERTENSION [None]
  - MYOCARDIAL ISCHAEMIA [None]
  - TACHYCARDIA [None]
  - TREMOR [None]
